FAERS Safety Report 16356267 (Version 2)
Quarter: 2021Q4

REPORT INFORMATION
  Report Type: Spontaneous
  Country: CA (occurrence: CA)
  Receive Date: 20190527
  Receipt Date: 20211014
  Transmission Date: 20220304
  Serious: Yes (Death, Other)
  Sender: FDA-Public Use
  Company Number: CA-OCTA-NGAM07919CA

PATIENT
  Age: 82 Year
  Sex: Male

DRUGS (1)
  1. PANZYGA [Suspect]
     Active Substance: HUMAN IMMUNOGLOBULIN G
     Indication: Guillain-Barre syndrome
     Route: 042
     Dates: start: 20190313, end: 20190313

REACTIONS (4)
  - Blood pressure increased [Unknown]
  - Chills [Unknown]
  - Oxygen saturation decreased [Unknown]
  - Tachypnoea [Unknown]

NARRATIVE: CASE EVENT DATE: 20190313
